FAERS Safety Report 23929032 (Version 1)
Quarter: 2024Q2

REPORT INFORMATION
  Report Type: Spontaneous
  Country: US (occurrence: US)
  Receive Date: 20240601
  Receipt Date: 20240601
  Transmission Date: 20240716
  Serious: No
  Sender: FDA-Public Use
  Company Number: US-UNITED THERAPEUTICS-UNT-2024-011467

PATIENT
  Age: 56 Year
  Sex: Female

DRUGS (2)
  1. REMODULIN [Suspect]
     Active Substance: TREPROSTINIL
     Indication: Pulmonary arterial hypertension
     Dosage: 0.01719 ?G/KG (AT PUMP RATE OF 33 UL/HR), CONTINUING
     Route: 058
     Dates: start: 202404
  2. REMODULIN [Suspect]
     Active Substance: TREPROSTINIL
     Dosage: UNK, CONTINUING
     Route: 058
     Dates: start: 202404

REACTIONS (4)
  - Nausea [Unknown]
  - Vomiting [Recovering/Resolving]
  - Illness [Recovering/Resolving]
  - Drug titration error [Recovered/Resolved]

NARRATIVE: CASE EVENT DATE: 20240401
